FAERS Safety Report 8623754-7 (Version None)
Quarter: 2012Q3

REPORT INFORMATION
  Report Type: 
  Country: None (occurrence: None)
  Receive Date: 20120827
  Receipt Date: 20120822
  Transmission Date: 20120928
  Serious: Yes (Other)
  Sender: FDA-Public Use
  Company Number: US-PFIZER INC-2012057085

PATIENT
  Age: 82 Year
  Sex: Male
  Weight: 94.785 kg

DRUGS (2)
  1. PROCARDIA XL [Suspect]
     Indication: HYPERTENSION
     Dosage: 60 MG, 3X/DAY
  2. INSULIN [Concomitant]
     Indication: DIABETES MELLITUS
     Dosage: UNK, 2X/DAY

REACTIONS (2)
  - RENAL FAILURE [None]
  - DIABETES MELLITUS INADEQUATE CONTROL [None]
